FAERS Safety Report 8457457-9 (Version None)
Quarter: 2012Q2

REPORT INFORMATION
  Report Type: 
  Country: None (occurrence: None)
  Receive Date: 20120621
  Receipt Date: 20120613
  Transmission Date: 20120825
  Serious: Yes (Hospitalization, Disabling, Other)
  Sender: FDA-Public Use
  Company Number: US-MERCK-1202USA03877

PATIENT
  Age: 56 Year
  Sex: Male
  Weight: 53 kg

DRUGS (13)
  1. CORTICOSTEROIDS (UNSPECIFIED) [Concomitant]
     Dosage: 1951-PRESENT
     Route: 065
  2. FOSAMAX [Suspect]
     Route: 048
     Dates: start: 20080301, end: 20100601
  3. FOSAMAX [Suspect]
     Route: 048
     Dates: start: 20020404, end: 20080101
  4. ALENDRONATE SODIUM [Suspect]
     Indication: OSTEOPOROSIS
     Route: 065
     Dates: start: 20080301, end: 20100601
  5. FOSAMAX [Suspect]
     Indication: OSTEOPOROSIS
     Route: 048
     Dates: start: 20000101, end: 20080101
  6. CYTOTEC [Concomitant]
     Route: 065
  7. DIOVAN [Concomitant]
     Indication: HYPERTENSION
     Route: 065
  8. CORTISONE [Concomitant]
     Indication: ARTHRITIS
     Dosage: 1950-PRESENT
     Route: 065
  9. FOSAMAX [Suspect]
     Route: 048
  10. CALCIUM (UNSPECIFIED) [Concomitant]
     Dosage: TO PRESENT
     Route: 065
     Dates: start: 19950101
  11. VITAMIN D (UNSPECIFIED) [Concomitant]
     Dosage: TO PRESENT
     Route: 065
     Dates: start: 19950101
  12. CELEBREX [Concomitant]
     Indication: ARTHRITIS
     Dosage: TO PRESENT
     Route: 065
     Dates: start: 20050101
  13. PREDNISONE [Concomitant]
     Indication: ARTHRITIS
     Dosage: 1950-PRESENT
     Route: 065

REACTIONS (35)
  - INGUINAL HERNIA [None]
  - OSTEOARTHRITIS [None]
  - AORTIC VALVE INCOMPETENCE [None]
  - HAEMORRHAGIC ANAEMIA [None]
  - ULCER [None]
  - PROSTATE CANCER [None]
  - PYREXIA [None]
  - BLOOD UREA INCREASED [None]
  - JUVENILE ARTHRITIS [None]
  - HAEMORRHOIDS [None]
  - CARDIAC MURMUR [None]
  - COLITIS [None]
  - EPISTAXIS [None]
  - ARTHROPATHY [None]
  - CELLULITIS [None]
  - CONFUSIONAL STATE [None]
  - FRACTURE [None]
  - EXCORIATION [None]
  - CARDIAC DISORDER [None]
  - AORTIC DILATATION [None]
  - FEMUR FRACTURE [None]
  - INFECTION [None]
  - DIARRHOEA [None]
  - GAIT DISTURBANCE [None]
  - VENOUS INSUFFICIENCY [None]
  - MYOCARDIAL INFARCTION [None]
  - OEDEMA PERIPHERAL [None]
  - CHOLELITHIASIS [None]
  - MITRAL VALVE INCOMPETENCE [None]
  - MASS [None]
  - SKIN ULCER [None]
  - NEPHROLITHIASIS [None]
  - HYPOTHYROIDISM [None]
  - CALCIUM DEFICIENCY [None]
  - GASTROINTESTINAL HAEMORRHAGE [None]
